FAERS Safety Report 7483842-8 (Version None)
Quarter: 2011Q2

REPORT INFORMATION
  Report Type: 
  Country: None (occurrence: None)
  Receive Date: 20110517
  Receipt Date: 20110504
  Transmission Date: 20111010
  Serious: Yes (Hospitalization)
  Sender: FDA-Public Use
  Company Number: PHHY2011US37552

PATIENT
  Age: 68 Year
  Sex: Female
  Weight: 84.807 kg

DRUGS (3)
  1. DIOVAN HCT [Suspect]
     Dates: end: 20090101
  2. CELEBREX [Suspect]
     Dates: end: 20090101
  3. TORADOL [Suspect]
     Dates: end: 20090101

REACTIONS (6)
  - RENAL IMPAIRMENT [None]
  - RENAL TUBULAR NECROSIS [None]
  - RENAL FAILURE ACUTE [None]
  - MULTIPLE MYELOMA [None]
  - HYPOPERFUSION [None]
  - TUBULOINTERSTITIAL NEPHRITIS [None]
